FAERS Safety Report 9140526 (Version 1)
Quarter: 2013Q1

REPORT INFORMATION
  Report Type: Spontaneous
  Country: US (occurrence: US)
  Receive Date: 20130305
  Receipt Date: 20130305
  Transmission Date: 20140127
  Serious: Yes (Other)
  Sender: FDA-Public Use
  Company Number: US-PFIZER INC-2013067497

PATIENT
  Age: 45 Year
  Sex: Male
  Weight: 88.44 kg

DRUGS (1)
  1. PREPARATION H CREAM MAX STRENGTH [Suspect]
     Dosage: UNK, DAILY

REACTIONS (1)
  - Hypertension [Not Recovered/Not Resolved]
